FAERS Safety Report 21409449 (Version 1)
Quarter: 2022Q4

REPORT INFORMATION
  Report Type: Spontaneous
  Country: CN (occurrence: CN)
  Receive Date: 20221004
  Receipt Date: 20221004
  Transmission Date: 20230113
  Serious: Yes (Other)
  Sender: FDA-Public Use
  Company Number: CN-TAKEDA-2022TUS068216

PATIENT
  Age: 59 Year
  Sex: Male
  Weight: 76.4 kg

DRUGS (8)
  1. ADCETRIS [Suspect]
     Active Substance: BRENTUXIMAB VEDOTIN
     Indication: Peripheral T-cell lymphoma unspecified
     Dosage: 100 MILLIGRAM, QD
     Route: 041
     Dates: start: 20220915, end: 20220915
  2. METHYLPREDNISOLONE SODIUM SUCCINATE [Suspect]
     Active Substance: METHYLPREDNISOLONE SODIUM SUCCINATE
     Indication: Peripheral T-cell lymphoma unspecified
     Dosage: 240 MILLIGRAM, BID
     Route: 041
     Dates: start: 20220916, end: 20220919
  3. ETOPOSIDE [Concomitant]
     Active Substance: ETOPOSIDE
     Indication: Peripheral T-cell lymphoma unspecified
     Dosage: 70 MILLIGRAM, QD
     Route: 041
     Dates: start: 20220916, end: 20220919
  4. SODIUM CHLORIDE [Concomitant]
     Active Substance: SODIUM CHLORIDE
     Dosage: 100 MILLILITER, QD
     Route: 041
     Dates: start: 20220915, end: 20220915
  5. SODIUM CHLORIDE [Concomitant]
     Active Substance: SODIUM CHLORIDE
     Dosage: 250 MILLILITER, BID
     Route: 041
     Dates: start: 20220916, end: 20220919
  6. SODIUM CHLORIDE [Concomitant]
     Active Substance: SODIUM CHLORIDE
     Dosage: 500 MILLILITER, QD
     Route: 041
     Dates: start: 20220916, end: 20220919
  7. STERILE WATER [Concomitant]
     Active Substance: WATER
     Dosage: 21 MILLILITER, QD
     Route: 041
     Dates: start: 20220915, end: 20220915
  8. CISPLATIN [Concomitant]
     Active Substance: CISPLATIN
     Indication: Peripheral T-cell lymphoma unspecified
     Dosage: 45 MILLIGRAM, QD
     Route: 041
     Dates: start: 20220916, end: 20220919

REACTIONS (1)
  - Blood glucose increased [Recovering/Resolving]

NARRATIVE: CASE EVENT DATE: 20220917
